FAERS Safety Report 9272978 (Version 10)
Quarter: 2015Q2

REPORT INFORMATION
  Report Type: Report from Study
  Country: IN (occurrence: IN)
  Receive Date: 20130506
  Receipt Date: 20150609
  Transmission Date: 20150821
  Serious: Yes (Hospitalization)
  Sender: FDA-Public Use
  Company Number: IN-MERCK-1304IND017334

PATIENT
  Age: 52 Year
  Sex: Male
  Weight: 61 kg

DRUGS (7)
  1. PEGINTERFERON ALFA-2B [Suspect]
     Active Substance: PEGINTERFERON ALFA-2B
     Indication: HEPATITIS C
     Dosage: 80 MCG, 0.5 ML, WEEKLY ONCE
     Route: 058
     Dates: start: 20130104, end: 20130417
  2. CIPLAR [Concomitant]
     Indication: PORTAL HYPERTENSION
     Dosage: 40 MG, QD
     Route: 048
     Dates: start: 20111129
  3. RIBAVIRIN. [Suspect]
     Active Substance: RIBAVIRIN
     Indication: HEPATITIS C
     Dosage: 400 MG, BID
     Route: 048
     Dates: start: 20130104, end: 20130417
  4. PANTOPRAZOLE [Concomitant]
     Active Substance: PANTOPRAZOLE SODIUM
     Indication: DYSPEPSIA
     Dosage: 20 MG, BID
     Route: 048
     Dates: start: 20111129
  5. PLACEBO [Suspect]
     Active Substance: UNSPECIFIED INGREDIENT
     Indication: HEPATITIS C
     Dosage: UNK
     Route: 048
     Dates: start: 20130201, end: 20130417
  6. SMUTH CREAM [Concomitant]
     Indication: HAEMORRHOIDS
  7. SMUTH CREAM [Concomitant]
     Indication: ANAL FISSURE
     Dosage: UNK, ROUTE-EXTERNAL APPLICATION
     Route: 061
     Dates: start: 20120921

REACTIONS (1)
  - Liver disorder [Not Recovered/Not Resolved]

NARRATIVE: CASE EVENT DATE: 20130429
